FAERS Safety Report 7883974-6 (Version None)
Quarter: 2011Q4

REPORT INFORMATION
  Report Type: 
  Country: None (occurrence: None)
  Receive Date: 20111102
  Receipt Date: 20111022
  Transmission Date: 20120403
  Serious: Yes (Other)
  Sender: FDA-Public Use
  Company Number: PHHY2011IN94929

PATIENT
  Age: 30 Year
  Sex: Female

DRUGS (5)
  1. CLOFAZIMINE [Suspect]
     Indication: TYPE 2 LEPRA REACTION
     Dosage: 50 MG, UNK
  2. CLOFAZIMINE [Suspect]
     Dosage: 300 MG, UNK
  3. CLOFAZIMINE [Suspect]
     Dosage: 300 MG, PER MONTH
  4. CORTICOSTEROIDS [Concomitant]
  5. CLOFAZIMINE [Suspect]
     Indication: LEPROMATOUS LEPROSY
     Dosage: 100 MG, UNK

REACTIONS (3)
  - CONJUNCTIVAL DEPOSIT [None]
  - CORNEAL DEPOSITS [None]
  - CONJUNCTIVAL DISCOLOURATION [None]
